FAERS Safety Report 12502411 (Version 2)
Quarter: 2016Q3

REPORT INFORMATION
  Report Type: Spontaneous
  Country: US (occurrence: US)
  Receive Date: 20160627
  Receipt Date: 20160708
  Transmission Date: 20161109
  Serious: Yes (Other)
  Sender: FDA-Public Use
  Company Number: US-ACTELION-A-US2016-138106

PATIENT
  Age: 42 Year
  Sex: Male

DRUGS (4)
  1. UPTRAVI [Suspect]
     Active Substance: SELEXIPAG
     Indication: PULMONARY ARTERIAL HYPERTENSION
     Dosage: 800 MCG, BID
     Route: 048
     Dates: start: 20160505
  2. AMBRISENTAN [Suspect]
     Active Substance: AMBRISENTAN
     Indication: PULMONARY ARTERIAL HYPERTENSION
     Dosage: 10 MG, UNK
     Route: 065
     Dates: start: 20150316
  3. AMBRISENTAN [Suspect]
     Active Substance: AMBRISENTAN
     Dosage: 10 MG, UNK
     Route: 065
     Dates: start: 20151013
  4. ADCIRCA [Concomitant]
     Active Substance: TADALAFIL

REACTIONS (12)
  - Pyrexia [Recovered/Resolved]
  - Feeling hot [Recovered/Resolved]
  - Loss of consciousness [Unknown]
  - Hypotension [Recovered/Resolved]
  - Loss of consciousness [Not Recovered/Not Resolved]
  - Dehydration [Recovered/Resolved]
  - Enuresis [Recovered/Resolved]
  - Vision blurred [Unknown]
  - Syncope [Unknown]
  - Dizziness [Unknown]
  - Incontinence [Unknown]
  - Hyperhidrosis [Recovered/Resolved]
